FAERS Safety Report 22066395 (Version 5)
Quarter: 2023Q2

REPORT INFORMATION
  Report Type: Spontaneous
  Country: US (occurrence: US)
  Receive Date: 20230306
  Receipt Date: 20230425
  Transmission Date: 20230722
  Serious: Yes (Hospitalization)
  Sender: FDA-Public Use
  Company Number: US-KARYOPHARM-2023KPT000820

PATIENT

DRUGS (8)
  1. XPOVIO [Suspect]
     Active Substance: SELINEXOR
     Indication: Plasma cell myeloma
     Dosage: 60 MG, WEEKLY, FOR 2-3 DOSES
     Route: 048
     Dates: start: 20230208, end: 202302
  2. DEXAMETHASONE [Concomitant]
     Active Substance: DEXAMETHASONE
     Indication: Plasma cell myeloma
     Dosage: 20 MG, WEEKLY
     Dates: start: 202302
  3. OLANZAPINE [Concomitant]
     Active Substance: OLANZAPINE
     Dosage: UNK, QD, FOR 3 NIGHTS AT BEDTIME AFTER SELINEXOR
     Dates: start: 202302
  4. ACYCLOVIR [Concomitant]
     Active Substance: ACYCLOVIR
     Dosage: 400 MG, QD, AT BEDTIME
  5. SIMVASTATIN [Concomitant]
     Active Substance: SIMVASTATIN
     Dosage: 20 MG, QD, AT BEDIME
  6. KLONOPIN [Concomitant]
     Active Substance: CLONAZEPAM
     Indication: Restless legs syndrome
  7. POMALYST [Concomitant]
     Active Substance: POMALIDOMIDE
  8. ASPIRIN [Concomitant]
     Active Substance: ASPIRIN
     Dosage: 81 MG, QD

REACTIONS (4)
  - Pneumonia [Unknown]
  - Confusional state [Recovered/Resolved]
  - Plasma cell myeloma [Unknown]
  - Dizziness [Unknown]

NARRATIVE: CASE EVENT DATE: 20230101
